FAERS Safety Report 9008158 (Version 1)
Quarter: 2013Q1

REPORT INFORMATION
  Report Type: Spontaneous
  Country: FR (occurrence: FR)
  Receive Date: 20130111
  Receipt Date: 20130111
  Transmission Date: 20140127
  Serious: Yes (Death, Congenital Anomaly)
  Sender: FDA-Public Use
  Company Number: FR-009507513-1301FRA002840

PATIENT
  Sex: Female

DRUGS (3)
  1. COZAAR [Suspect]
     Indication: HYPERTENSION
     Dosage: 1DF, QD
     Route: 064
     Dates: end: 201209
  2. CELECTOL [Suspect]
     Indication: HYPERTENSION
     Dosage: 200 MG, QD
     Route: 064
  3. ETHINYL ESTRADIOL [Concomitant]
     Indication: CONTRACEPTION
     Dosage: UNK DF, UNK
     Route: 064

REACTIONS (3)
  - Oligohydramnios [Fatal]
  - Potter^s syndrome [Fatal]
  - Foetal exposure during pregnancy [Unknown]
